FAERS Safety Report 21757941 (Version 1)
Quarter: 2022Q4

REPORT INFORMATION
  Report Type: Report from Study
  Country: US (occurrence: US)
  Receive Date: 20221221
  Receipt Date: 20221221
  Transmission Date: 20230113
  Serious: No
  Sender: FDA-Public Use
  Company Number: US-ABBVIE-4244049

PATIENT
  Sex: Male

DRUGS (1)
  1. LUPRON DEPOT [Suspect]
     Active Substance: LEUPROLIDE ACETATE
     Indication: Product used for unknown indication
     Route: 065
     Dates: start: 20220701

REACTIONS (6)
  - Herpes zoster [Unknown]
  - Limb injury [Unknown]
  - Hot flush [Unknown]
  - Loss of libido [Unknown]
  - Headache [Unknown]
  - Road traffic accident [Unknown]
